FAERS Safety Report 8188099-0 (Version None)
Quarter: 2012Q1

REPORT INFORMATION
  Report Type: 
  Country: None (occurrence: None)
  Receive Date: 20120302
  Receipt Date: 20120224
  Transmission Date: 20120608
  Serious: Yes (Hospitalization)
  Sender: FDA-Public Use
  Company Number: DAV-AE-NAP-12-01

PATIENT
  Age: 46 Year
  Sex: Male

DRUGS (2)
  1. AZELASTINE HCL [Concomitant]
  2. NAPROXEN [Suspect]
     Indication: NASOPHARYNGITIS

REACTIONS (5)
  - REGURGITATION [None]
  - OESOPHAGEAL DISORDER [None]
  - OESOPHAGEAL ULCER [None]
  - DYSPHAGIA [None]
  - OESOPHAGEAL INJURY [None]
